FAERS Safety Report 20585683 (Version 8)
Quarter: 2022Q4

REPORT INFORMATION
  Report Type: Report from Study
  Country: JP (occurrence: JP)
  Receive Date: 20220312
  Receipt Date: 20221206
  Transmission Date: 20230113
  Serious: Yes (Death, Life-Threatening)
  Sender: FDA-Public Use
  Company Number: JP-ABBVIE-22K-087-4308641-00

PATIENT
  Age: 42 Year
  Sex: Male
  Weight: 53 kg

DRUGS (8)
  1. VENCLEXTA [Suspect]
     Active Substance: VENETOCLAX
     Indication: Acute myeloid leukaemia
     Route: 048
     Dates: start: 20210402, end: 20210402
  2. VENCLEXTA [Suspect]
     Active Substance: VENETOCLAX
     Indication: Acute myeloid leukaemia
     Route: 048
     Dates: start: 20210403, end: 20210403
  3. VENCLEXTA [Suspect]
     Active Substance: VENETOCLAX
     Indication: Acute myeloid leukaemia
     Route: 048
     Dates: start: 20210404, end: 20210429
  4. VIDAZA [Concomitant]
     Active Substance: AZACITIDINE
     Indication: Acute myeloid leukaemia
     Route: 058
     Dates: start: 20210402
  5. PREDNISOLONE [Concomitant]
     Active Substance: PREDNISOLONE
     Indication: Acute myeloid leukaemia
     Route: 048
     Dates: start: 20210405, end: 20210405
  6. PREDNISOLONE [Concomitant]
     Active Substance: PREDNISOLONE
     Indication: Acute myeloid leukaemia
     Route: 048
     Dates: start: 20210405, end: 20210405
  7. AMPHOTERICIN B [Concomitant]
     Active Substance: AMPHOTERICIN B
     Indication: Infection prophylaxis
     Route: 050
  8. MEROPENEM [Concomitant]
     Active Substance: MEROPENEM
     Indication: Infection prophylaxis

REACTIONS (3)
  - Pneumonia bacterial [Fatal]
  - Ileus paralytic [Recovered/Resolved]
  - Cellulitis [Recovering/Resolving]

NARRATIVE: CASE EVENT DATE: 20210422
